FAERS Safety Report 4744753-1 (Version None)
Quarter: 2005Q3

REPORT INFORMATION
  Report Type: 
  Country: None (occurrence: None)
  Receive Date: 20050815
  Receipt Date: 20050810
  Transmission Date: 20060218
  Serious: Yes (Other)
  Sender: FDA-Public Use
  Company Number: US-GLAXOSMITHKLINE-A0569668A

PATIENT
  Age: 54 Year
  Sex: Male

DRUGS (1)
  1. COMMIT [Suspect]
     Route: 048
     Dates: start: 20050807

REACTIONS (2)
  - CHOKING [None]
  - INTENTIONAL MISUSE [None]
